FAERS Safety Report 16676936 (Version 2)
Quarter: 2019Q4

REPORT INFORMATION
  Report Type: Spontaneous
  Country: GB (occurrence: GB)
  Receive Date: 20190807
  Receipt Date: 20191224
  Transmission Date: 20200122
  Serious: Yes (Death, Hospitalization)
  Sender: FDA-Public Use
  Company Number: GB-ACCORD-150424

PATIENT
  Age: 66 Year
  Sex: Female
  Weight: 99 kg

DRUGS (9)
  1. METOCLOPRAMIDE. [Concomitant]
     Active Substance: METOCLOPRAMIDE
     Dosage: AS NECESSARY FOR 7 DAYS
  2. OXALIPLATIN. [Concomitant]
     Active Substance: OXALIPLATIN
     Dosage: 85MG/M2 165MG OVER 2 HOURS
     Dates: start: 20190321
  3. FLUOROURACIL. [Suspect]
     Active Substance: FLUOROURACIL
     Indication: COLON CANCER STAGE III
     Dosage: NOT KNOWN
     Route: 040
     Dates: start: 20190321, end: 20190323
  4. ONDANSETRON [Concomitant]
     Active Substance: ONDANSETRON
     Route: 042
  5. FOLINIC ACID [Concomitant]
     Active Substance: LEUCOVORIN
     Dosage: OVER 2 HOURS
     Dates: start: 20190321
  6. FLUOROURACIL. [Suspect]
     Active Substance: FLUOROURACIL
     Indication: PRODUCT USED FOR UNKNOWN INDICATION
     Dosage: NOT KNOWN
     Route: 051
     Dates: start: 20190323, end: 20190323
  7. DEXAMETHASONE. [Concomitant]
     Active Substance: DEXAMETHASONE
     Dosage: FOR 3 DAYS
  8. DEXAMETHASONE. [Concomitant]
     Active Substance: DEXAMETHASONE
     Route: 042
  9. FLUOROURACIL. [Suspect]
     Active Substance: FLUOROURACIL
     Indication: PRODUCT USED FOR UNKNOWN INDICATION
     Dosage: 2400MG/M2 - 5000MG IV INFUSION VIA PUMP OVER 46 HOURS
     Route: 042
     Dates: start: 20190321, end: 20190323

REACTIONS (9)
  - Pancytopenia [Not Recovered/Not Resolved]
  - Vomiting [Not Recovered/Not Resolved]
  - Dehydration [Not Recovered/Not Resolved]
  - Mucosal inflammation [Not Recovered/Not Resolved]
  - Diarrhoea [Not Recovered/Not Resolved]
  - Oral pain [Not Recovered/Not Resolved]
  - Nausea [Not Recovered/Not Resolved]
  - Neutropenic sepsis [Fatal]
  - Enteritis [Not Recovered/Not Resolved]
